APPROVED DRUG PRODUCT: NITROLINGUAL PUMPSPRAY
Active Ingredient: NITROGLYCERIN
Strength: 0.4MG/SPRAY
Dosage Form/Route: SPRAY, METERED;SUBLINGUAL
Application: N018705 | Product #002 | TE Code: AB
Applicant: POHL BOSKAMP
Approved: Jan 10, 1997 | RLD: Yes | RS: Yes | Type: RX

PATENTS:
Patent 7872049 | Expires: Mar 12, 2029